FAERS Safety Report 4468473-6 (Version None)
Quarter: 2004Q4

REPORT INFORMATION
  Report Type: 
  Country: None (occurrence: None)
  Receive Date: 20041006
  Receipt Date: 20041001
  Transmission Date: 20050328
  Serious: Yes (Other)
  Sender: FDA-Public Use
  Company Number: 002828

PATIENT
  Age: 57 Year
  Sex: Female

DRUGS (5)
  1. MEDROXYPROGESTERONE ACETATE [Suspect]
     Dosage: ORAL
     Route: 048
     Dates: start: 19970101, end: 19980101
  2. PROVERA [Suspect]
     Dosage: ORAL
     Route: 048
     Dates: start: 19970101, end: 19980101
  3. ESTRATEST [Suspect]
     Dosage: ORAL
     Route: 048
     Dates: start: 20020301, end: 20021201
  4. PREMARIN [Suspect]
     Dosage: ORAL
     Route: 048
     Dates: start: 20000206, end: 20020201
  5. MEDROXYPROGESTERONE ACETATE [Suspect]
     Dosage: ORAL
     Route: 048
     Dates: start: 19981103, end: 19991201

REACTIONS (1)
  - BREAST CANCER FEMALE [None]
